FAERS Safety Report 6328543-4 (Version None)
Quarter: 2009Q3

REPORT INFORMATION
  Report Type: 
  Country: None (occurrence: None)
  Receive Date: 20090826
  Receipt Date: 20070906
  Transmission Date: 20100115
  Serious: Yes (Hospitalization, Other)
  Sender: FDA-Public Use
  Company Number: US-ASTRAZENECA-2006UW27933

PATIENT
  Age: 61 Year
  Sex: Male
  Weight: 68 kg

DRUGS (14)
  1. SEROQUEL [Suspect]
     Indication: INSOMNIA
     Route: 048
     Dates: start: 20000829
  2. SEROQUEL [Suspect]
     Dosage: 100 TO 200MG
     Route: 048
  3. LITHIUM CARBONATE [Concomitant]
  4. DEPAKOTE [Concomitant]
     Dosage: 250 MG IN MORNING AND 500 MG IN EVENING
     Route: 048
     Dates: start: 19961223
  5. PAXIL [Concomitant]
  6. PROZAC [Concomitant]
     Dates: start: 19980304
  7. BENZODIAZIPINES [Concomitant]
  8. TRAZODONE HCL [Concomitant]
     Dates: start: 20061024
  9. LORAZEPAM [Concomitant]
     Dates: start: 20061024
  10. LITHIUM CARBONATE [Concomitant]
     Dosage: 1200 MG - 1500 MG
     Route: 048
     Dates: start: 19961223
  11. ZANTAC [Concomitant]
     Indication: DUODENAL ULCER
     Dates: start: 19961223
  12. VALIUM [Concomitant]
     Dates: start: 19980304
  13. OMEPRAZOLE [Concomitant]
     Dates: start: 19980520
  14. CELEBREX [Concomitant]
     Indication: OSTEOARTHRITIS
     Dates: start: 20060827

REACTIONS (5)
  - ALCOHOLIC PANCREATITIS [None]
  - PANCREATIC INSUFFICIENCY [None]
  - PANCREATITIS [None]
  - PANCREATITIS ACUTE [None]
  - PANCREATITIS CHRONIC [None]
